FAERS Safety Report 10259008 (Version 3)
Quarter: 2014Q3

REPORT INFORMATION
  Report Type: Report from Study
  Country: US (occurrence: US)
  Receive Date: 20140625
  Receipt Date: 20140909
  Transmission Date: 20150326
  Serious: Yes (Hospitalization, Other)
  Sender: FDA-Public Use
  Company Number: US-ALEXION PHARMACEUTICALS INC.-A201305282

PATIENT

DRUGS (1)
  1. SOLIRIS [Suspect]
     Active Substance: ECULIZUMAB
     Indication: HAEMOLYTIC URAEMIC SYNDROME
     Dosage: UNK
     Route: 042

REACTIONS (11)
  - Vomiting [Unknown]
  - Oedema peripheral [Recovering/Resolving]
  - Abscess [Recovered/Resolved]
  - Loss of consciousness [Unknown]
  - Nausea [Unknown]
  - Malaise [Recovering/Resolving]
  - Haematuria [Unknown]
  - Pneumonia [Unknown]
  - Anaemia [Unknown]
  - Gastrointestinal haemorrhage [Unknown]
  - Drug withdrawal syndrome [Unknown]
